FAERS Safety Report 18784678 (Version 3)
Quarter: 2021Q2

REPORT INFORMATION
  Report Type: Report from Study
  Country: US (occurrence: US)
  Receive Date: 20210125
  Receipt Date: 20210622
  Transmission Date: 20210717
  Serious: Yes (Other)
  Sender: FDA-Public Use
  Company Number: US-OTSUKA-2020_025840

PATIENT
  Sex: Female
  Weight: 72.56 kg

DRUGS (1)
  1. ASTX727 [Suspect]
     Active Substance: CEDAZURIDINE\DECITABINE
     Indication: MYELODYSPLASTIC SYNDROME
     Dosage: 135 MG (100 CEDAZURIDINE AND 35 MG DECITABINE) QD ON DAYS 1?5 OF 28 DAY CYCLE
     Route: 065
     Dates: start: 20201002

REACTIONS (4)
  - Transfusion [Unknown]
  - Platelet transfusion [Unknown]
  - Drug ineffective [Unknown]
  - Pruritus [Recovering/Resolving]
